FAERS Safety Report 9165762 (Version 1)
Quarter: 2013Q1

REPORT INFORMATION
  Report Type: Report from Study
  Country: AT (occurrence: AT)
  Receive Date: 20130315
  Receipt Date: 20130315
  Transmission Date: 20140127
  Serious: Yes (Hospitalization)
  Sender: FDA-Public Use
  Company Number: AT-ABBOTT-13P-009-1061529-00

PATIENT
  Sex: Male

DRUGS (8)
  1. HUMIRA [Suspect]
     Indication: CROHN^S DISEASE
     Dates: start: 20121102, end: 20121102
  2. HUMIRA [Suspect]
     Dates: start: 20121116, end: 20121116
  3. HUMIRA [Suspect]
  4. ACLASIA [Concomitant]
     Indication: OSTEOPOROSIS
  5. CAL-D-VITA [Concomitant]
     Indication: OSTEOPOROSIS
     Dosage: 600/400 MG IE
  6. FERINJECT [Concomitant]
     Indication: IRON DEFICIENCY
     Dosage: ON DEMAND
     Dates: start: 201211
  7. VENOFER [Concomitant]
     Indication: IRON DEFICIENCY
     Dosage: ON DEMAND
     Dates: start: 201211
  8. RESTEX [Concomitant]
     Indication: RESTLESS LEGS SYNDROME
     Dosage: 100/25 MG
     Dates: start: 201302

REACTIONS (1)
  - Paraesthesia [Recovered/Resolved]
